FAERS Safety Report 12985467 (Version 1)
Quarter: 2016Q4

REPORT INFORMATION
  Report Type: Spontaneous
  Country: DE (occurrence: DE)
  Receive Date: 20161130
  Receipt Date: 20161130
  Transmission Date: 20170207
  Serious: Yes (Other)
  Sender: FDA-Public Use
  Company Number: GXKR2016DE005415

PATIENT
  Age: 80 Year
  Sex: Female

DRUGS (1)
  1. THIAMAZOL HEXAL [Suspect]
     Active Substance: METHIMAZOLE
     Indication: HYPERTHYROIDISM
     Dosage: 10 MG, TID
     Route: 048
     Dates: start: 201611, end: 20161124

REACTIONS (3)
  - Polyneuropathy [Unknown]
  - Rash [Unknown]
  - Eczema [Unknown]

NARRATIVE: CASE EVENT DATE: 201611
